FAERS Safety Report 6691379-9 (Version None)
Quarter: 2010Q2

REPORT INFORMATION
  Report Type: 
  Country: None (occurrence: None)
  Receive Date: 20100422
  Receipt Date: 20100412
  Transmission Date: 20101027
  Serious: Yes (Hospitalization, Other)
  Sender: FDA-Public Use
  Company Number: US-CELGENEUS-163-21880-10032337

PATIENT
  Sex: Female
  Weight: 77.18 kg

DRUGS (6)
  1. REVLIMID [Suspect]
     Indication: MULTIPLE MYELOMA
     Route: 048
     Dates: start: 20100210, end: 20100322
  2. REVLIMID [Suspect]
     Route: 048
     Dates: start: 20080701, end: 20081101
  3. ZOLOFT [Concomitant]
     Indication: DRUG USE FOR UNKNOWN INDICATION
     Route: 065
  4. ZOLOFT [Concomitant]
     Route: 065
  5. TRAZODONE [Concomitant]
     Indication: DRUG USE FOR UNKNOWN INDICATION
     Route: 065
  6. ASPIRIN [Concomitant]
     Indication: DRUG USE FOR UNKNOWN INDICATION
     Route: 065

REACTIONS (8)
  - DEHYDRATION [None]
  - DEPRESSION [None]
  - HYPOKALAEMIA [None]
  - NAUSEA [None]
  - OROPHARYNGEAL CANDIDIASIS [None]
  - PYREXIA [None]
  - VIRAL INFECTION [None]
  - VOMITING [None]
